FAERS Safety Report 25668254 (Version 1)
Quarter: 2025Q3

REPORT INFORMATION
  Report Type: Spontaneous
  Country: JP (occurrence: JP)
  Receive Date: 20250812
  Receipt Date: 20250812
  Transmission Date: 20251020
  Serious: Yes (Hospitalization)
  Sender: ADVANZ PHARMA
  Company Number: JP-ADVANZ PHARMA-202508007017

PATIENT

DRUGS (15)
  1. ZONISAMIDE [Suspect]
     Active Substance: ZONISAMIDE
     Indication: Product used for unknown indication
     Route: 048
     Dates: end: 20250611
  2. ZONISAMIDE [Suspect]
     Active Substance: ZONISAMIDE
     Route: 048
     Dates: start: 20250616, end: 20250617
  3. ZONISAMIDE [Suspect]
     Active Substance: ZONISAMIDE
     Route: 048
     Dates: start: 20250618, end: 20250620
  4. PHENYTOIN SODIUM [Suspect]
     Active Substance: PHENYTOIN SODIUM
     Indication: Epilepsy
     Route: 048
     Dates: start: 20250620, end: 20250623
  5. PHENYTOIN SODIUM [Suspect]
     Active Substance: PHENYTOIN SODIUM
     Route: 048
     Dates: start: 20250624, end: 20250702
  6. PHENYTOIN SODIUM [Suspect]
     Active Substance: PHENYTOIN SODIUM
     Route: 048
     Dates: start: 20250703, end: 20250706
  7. PHENYTOIN SODIUM [Suspect]
     Active Substance: PHENYTOIN SODIUM
     Route: 048
     Dates: start: 20250707, end: 20250707
  8. PHENYTOIN SODIUM [Suspect]
     Active Substance: PHENYTOIN SODIUM
     Route: 048
     Dates: start: 20250708, end: 20250713
  9. VALPROATE SODIUM [Suspect]
     Active Substance: VALPROATE SODIUM
     Indication: Product used for unknown indication
     Route: 048
     Dates: end: 20250611
  10. VALPROATE SODIUM [Suspect]
     Active Substance: VALPROATE SODIUM
     Route: 048
     Dates: start: 20250618, end: 20250620
  11. VALPROATE SODIUM [Suspect]
     Active Substance: VALPROATE SODIUM
     Route: 048
     Dates: start: 20250629, end: 20250630
  12. VALPROATE SODIUM [Suspect]
     Active Substance: VALPROATE SODIUM
     Indication: Epilepsy
     Route: 048
     Dates: start: 20250701, end: 20250702
  13. VALPROATE SODIUM [Suspect]
     Active Substance: VALPROATE SODIUM
     Route: 048
     Dates: start: 20250703, end: 20250713
  14. LAMOTRIGINE [Concomitant]
     Active Substance: LAMOTRIGINE
     Dates: end: 20250611
  15. PHENOBARBITAL [Concomitant]
     Active Substance: PHENOBARBITAL
     Dates: end: 20250611

REACTIONS (3)
  - White blood cell count decreased [Recovering/Resolving]
  - Neutrophil count decreased [Recovering/Resolving]
  - Rash [Unknown]

NARRATIVE: CASE EVENT DATE: 20250702
